FAERS Safety Report 8530739-8 (Version None)
Quarter: 2012Q3

REPORT INFORMATION
  Report Type: 
  Country: None (occurrence: None)
  Receive Date: 20120723
  Receipt Date: 20120717
  Transmission Date: 20120928
  Serious: Yes (Death)
  Sender: FDA-Public Use
  Company Number: CH-ROCHE-1062065

PATIENT
  Age: 80 Year
  Sex: Male

DRUGS (1)
  1. ZELBORAF [Suspect]
     Indication: NON-SMALL CELL LUNG CANCER
     Route: 048

REACTIONS (1)
  - CARDIAC DISORDER [None]
